FAERS Safety Report 21026372 (Version 1)
Quarter: 2022Q2

REPORT INFORMATION
  Report Type: Spontaneous
  Country: US (occurrence: None)
  Receive Date: 20220629
  Receipt Date: 20220629
  Transmission Date: 20220720
  Serious: Yes (Death)
  Sender: FDA-Public Use
  Company Number: None

PATIENT
  Age: 63 Year
  Sex: Female

DRUGS (1)
  1. TADALAFIL [Suspect]
     Active Substance: TADALAFIL
     Dosage: 40MG DAILY ORAL?
     Route: 048
     Dates: start: 202110, end: 202206

REACTIONS (1)
  - Death [None]

NARRATIVE: CASE EVENT DATE: 20220628
